FAERS Safety Report 20643736 (Version 1)
Quarter: 2022Q1

REPORT INFORMATION
  Report Type: Spontaneous
  Country: TH (occurrence: TH)
  Receive Date: 20220328
  Receipt Date: 20220328
  Transmission Date: 20220424
  Serious: Yes (Other)
  Sender: FDA-Public Use
  Company Number: TH-NOVARTISPH-NVSC2022TH065650

PATIENT
  Age: 60 Year
  Sex: Male

DRUGS (9)
  1. ELTROMBOPAG [Suspect]
     Active Substance: ELTROMBOPAG
     Indication: Aplastic anaemia
     Dosage: 75 MG, QD
     Route: 048
     Dates: start: 20200709
  2. ELTROMBOPAG [Suspect]
     Active Substance: ELTROMBOPAG
     Dosage: UNK (INCREASE ELTROMBOPAG TO 4X1)
     Route: 065
     Dates: start: 20210106
  3. CYCLOSPORINE [Concomitant]
     Active Substance: CYCLOSPORINE
     Indication: Product used for unknown indication
     Dosage: UNK (6 MKD TARGET TROUGH LEVEL AT 200 PLUS/MINUS 50 PG/ML)
     Route: 065
  4. CYCLOSPORINE [Concomitant]
     Active Substance: CYCLOSPORINE
     Dosage: 150 MG, BID
     Route: 065
     Dates: start: 20210303
  5. CYCLOSPORINE [Concomitant]
     Active Substance: CYCLOSPORINE
     Dosage: UNK (DECREASE CSA TO 2 MKD)
     Route: 065
     Dates: start: 20210602
  6. CYCLOSPORINE [Concomitant]
     Active Substance: CYCLOSPORINE
     Dosage: UNK (OFF CSA)
     Route: 065
     Dates: end: 20210929
  7. THYMOGLOBULIN [Concomitant]
     Active Substance: LAPINE T-LYMPHOCYTE IMMUNE GLOBULIN
     Indication: Product used for unknown indication
     Dosage: 3.5 MG/KG
     Route: 065
     Dates: start: 20200709
  8. PREDNISOLONE [Concomitant]
     Active Substance: PREDNISOLONE
     Indication: Serum sickness
     Dosage: UNK (1 MKD X 14 DAYS)
     Route: 065
  9. DANAZOL [Concomitant]
     Active Substance: DANAZOL
     Indication: Product used for unknown indication
     Dosage: UNK (1X2)
     Route: 065
     Dates: start: 20210329

REACTIONS (11)
  - Renal failure [Unknown]
  - White blood cell count decreased [Unknown]
  - Leukocytosis [Unknown]
  - Neutrophil count decreased [Unknown]
  - Haemoglobin decreased [Unknown]
  - Reticulocyte count decreased [Unknown]
  - Reticulocyte count increased [Unknown]
  - Serum ferritin increased [Unknown]
  - Gingival hypertrophy [Recovering/Resolving]
  - Iron overload [Unknown]
  - Therapeutic response decreased [Unknown]

NARRATIVE: CASE EVENT DATE: 20210701
